FAERS Safety Report 9378640 (Version 2)
Quarter: 2013Q3

REPORT INFORMATION
  Report Type: Spontaneous
  Country: IT (occurrence: None)
  Receive Date: 20130626
  Receipt Date: 20130731
  Transmission Date: 20140515
  Serious: Yes (Other)
  Sender: FDA-Public Use
  Company Number: 1755609

PATIENT
  Age: 59 Year
  Sex: Female

DRUGS (3)
  1. (DIAZEPAM) [Suspect]
     Indication: ANAESTHESIA
     Dosage: 3 MG, TOTAL
     Route: 042
     Dates: start: 20130604, end: 20130604
  2. ECOCAIN [Suspect]
     Indication: LOCAL ANAESTHESIA
     Dosage: 1 POSOLOGICAL UNIT,  TOTAL, OROPHARINGEAL
     Dates: start: 20130604, end: 20130604
  3. BUSCOPAN [Suspect]
     Dosage: 20 MG, TOTAL
     Route: 042
     Dates: start: 20130604, end: 20130604

REACTIONS (7)
  - Erythema [None]
  - Asthenia [None]
  - Headache [None]
  - Dyspnoea [None]
  - Hypotension [None]
  - Flushing [None]
  - Oxygen saturation decreased [None]
